FAERS Safety Report 6656540-8 (Version None)
Quarter: 2010Q1

REPORT INFORMATION
  Report Type: 
  Country: None (occurrence: None)
  Receive Date: 20100329
  Receipt Date: 20100317
  Transmission Date: 20100710
  Serious: Yes (Disabling)
  Sender: FDA-Public Use
  Company Number: PHHY2010GB17225

PATIENT
  Age: 17 Year
  Sex: Female

DRUGS (1)
  1. CYCLOSPORINE [Suspect]
     Indication: ECZEMA
     Dosage: UNK
     Dates: start: 20081001

REACTIONS (1)
  - MYASTHENIA GRAVIS [None]
